FAERS Safety Report 13777417 (Version 1)
Quarter: 2017Q3

REPORT INFORMATION
  Report Type: Spontaneous
  Country: HU (occurrence: HU)
  Receive Date: 20170721
  Receipt Date: 20170721
  Transmission Date: 20171127
  Serious: Yes (Other)
  Sender: FDA-Public Use
  Company Number: HU-FRESENIUS KABI-FK201706133

PATIENT
  Age: 67 Year
  Sex: Female

DRUGS (12)
  1. OXALIPLATIN 5MG/ML CONCENTRATE FOR SOLUTION FOR INFUSION [Suspect]
     Active Substance: OXALIPLATIN
     Indication: COLON CANCER METASTATIC
     Route: 042
     Dates: start: 20161212, end: 20170626
  2. SOLU-MEDROL [Concomitant]
     Active Substance: METHYLPREDNISOLONE SODIUM SUCCINATE
     Indication: PREMEDICATION
     Route: 042
  3. CALCIUM FOLINATE [Concomitant]
     Active Substance: LEUCOVORIN CALCIUM
     Indication: COLON CANCER METASTATIC
     Route: 042
     Dates: start: 20161212
  4. IMODIUM [Concomitant]
     Active Substance: LOPERAMIDE HYDROCHLORIDE
     Indication: PRODUCT USED FOR UNKNOWN INDICATION
     Route: 048
  5. ONDANSETRON KABI [Concomitant]
     Active Substance: ONDANSETRON
     Indication: PREMEDICATION
     Route: 042
  6. NEO-FERRO-FOLGAMMA [Concomitant]
     Indication: ANAEMIA
     Route: 048
  7. TENOX [Concomitant]
     Indication: HYPERTENSION
     Route: 048
  8. PANTOPRAZOLE [Concomitant]
     Active Substance: PANTOPRAZOLE
     Indication: CHEMOTHERAPY TOXICITY ATTENUATION
     Route: 048
  9. BENFOGAMMA [Concomitant]
     Indication: PROPHYLAXIS
     Route: 048
  10. CLEXANE [Concomitant]
     Active Substance: ENOXAPARIN SODIUM
     Indication: THROMBOSIS PROPHYLAXIS
     Route: 058
  11. METEOSPASMYL [Concomitant]
     Active Substance: ALVERINE CITRATE\DIMETHICONE
     Indication: ABDOMINAL PAIN
     Route: 048
  12. VITAMIN D3 3000 NE [Concomitant]
     Indication: PROPHYLAXIS
     Route: 048

REACTIONS (4)
  - Palpitations [Recovered/Resolved]
  - Nasal congestion [Recovered/Resolved]
  - Rash macular [Recovered/Resolved]
  - Tinnitus [Recovered/Resolved]

NARRATIVE: CASE EVENT DATE: 20170626
